FAERS Safety Report 10091044 (Version 2)
Quarter: 2014Q2

REPORT INFORMATION
  Report Type: Spontaneous
  Country: US (occurrence: US)
  Receive Date: 20140421
  Receipt Date: 20140605
  Transmission Date: 20141212
  Serious: No
  Sender: FDA-Public Use
  Company Number: US-009507513-1404USA004778

PATIENT
  Sex: Female
  Weight: 73.16 kg

DRUGS (6)
  1. DULERA [Suspect]
     Indication: ASTHMA
     Dosage: 2 PUFFS TWICE A DAY
     Route: 055
  2. ALDACTONE (SPIRONOLACTONE) [Concomitant]
  3. HYDRALAZINE HYDROCHLORIDE [Concomitant]
  4. VALTREX [Concomitant]
  5. METOPROLOL TARTRATE [Concomitant]
  6. WARFARIN [Concomitant]

REACTIONS (3)
  - Drug dose omission [Unknown]
  - Device malfunction [Unknown]
  - No adverse event [Unknown]
